FAERS Safety Report 7501104-7 (Version None)
Quarter: 2011Q2

REPORT INFORMATION
  Report Type: 
  Country: None (occurrence: None)
  Receive Date: 20110524
  Receipt Date: 20100723
  Transmission Date: 20111010
  Serious: No
  Sender: FDA-Public Use
  Company Number: US-NOVEN-ALL1-2010-03989

PATIENT

DRUGS (3)
  1. DAYTRANA [Suspect]
     Dosage: 20 MG, 1X/DAY:QD
     Route: 062
     Dates: start: 20100301
  2. DAYTRANA [Suspect]
     Dosage: UNK MG, (ONE AND ONE HALF 10 MG PATCHES APPLIED DAILY)
     Route: 062
     Dates: start: 20100101, end: 20100301
  3. DAYTRANA [Suspect]
     Dosage: 10 MG, 1X/DAY:QD
     Route: 062
     Dates: start: 20100101, end: 20100101

REACTIONS (8)
  - WRONG TECHNIQUE IN DRUG USAGE PROCESS [None]
  - WEIGHT DECREASED [None]
  - APPLICATION SITE ERYTHEMA [None]
  - DECREASED APPETITE [None]
  - DRUG ADMINISTERED AT INAPPROPRIATE SITE [None]
  - INSOMNIA [None]
  - APPLICATION SITE PRURITUS [None]
  - PRODUCT QUALITY ISSUE [None]
